FAERS Safety Report 13452494 (Version 1)
Quarter: 2017Q2

REPORT INFORMATION
  Report Type: Spontaneous
  Country: US (occurrence: US)
  Receive Date: 20170418
  Receipt Date: 20170418
  Transmission Date: 20170830
  Serious: No
  Sender: FDA-Public Use
  Company Number: US-TEVA-711942USA

PATIENT
  Sex: Male

DRUGS (4)
  1. WARFARIN [Suspect]
     Active Substance: WARFARIN
     Dosage: 5 MILLIGRAM DAILY; 5 DAYS
  2. WARFARIN [Suspect]
     Active Substance: WARFARIN
     Dosage: 7 MILLIGRAM DAILY; 2 DAYS
  3. WARFARIN [Suspect]
     Active Substance: WARFARIN
     Dosage: 7 MILLIGRAM DAILY; 4 DAYS
  4. WARFARIN [Suspect]
     Active Substance: WARFARIN
     Dosage: 5 MILLIGRAM DAILY; 3 DAYS

REACTIONS (2)
  - Drug ineffective [Unknown]
  - International normalised ratio abnormal [Not Recovered/Not Resolved]

NARRATIVE: CASE EVENT DATE: 20161014
